FAERS Safety Report 21090136 (Version 2)
Quarter: 2022Q3

REPORT INFORMATION
  Report Type: Spontaneous
  Country: GB (occurrence: GB)
  Receive Date: 20220715
  Receipt Date: 20220722
  Transmission Date: 20221027
  Serious: Yes (Other)
  Sender: FDA-Public Use
  Company Number: GB-009507513-2207GBR003665

PATIENT
  Age: 57 Year
  Sex: Male

DRUGS (2)
  1. NOXAFIL [Suspect]
     Active Substance: POSACONAZOLE
     Indication: Aspergilloma
     Dosage: 40MG/ML
     Route: 048
  2. NOXAFIL [Suspect]
     Active Substance: POSACONAZOLE
     Dosage: 40MG/ML

REACTIONS (3)
  - Gastrointestinal tube insertion [Unknown]
  - Drug level below therapeutic [Unknown]
  - Product use issue [Unknown]
